FAERS Safety Report 8163943-1 (Version None)
Quarter: 2012Q1

REPORT INFORMATION
  Report Type: 
  Country: None (occurrence: None)
  Receive Date: 20120224
  Receipt Date: 20120216
  Transmission Date: 20120608
  Serious: Yes (Other)
  Sender: FDA-Public Use
  Company Number: PHHY2011CA112319

PATIENT
  Sex: Female

DRUGS (1)
  1. SANDOSTATIN LAR [Suspect]
     Indication: ACROMEGALY
     Dosage: 30 MG, QMO
     Route: 030
     Dates: start: 20110119

REACTIONS (5)
  - VERTIGO [None]
  - HYPOAESTHESIA [None]
  - NAUSEA [None]
  - HEADACHE [None]
  - GAIT DISTURBANCE [None]
